FAERS Safety Report 21876496 (Version 2)
Quarter: 2023Q1

REPORT INFORMATION
  Report Type: Report from Study
  Country: US (occurrence: US)
  Receive Date: 20230118
  Receipt Date: 20230318
  Transmission Date: 20230418
  Serious: No
  Sender: FDA-Public Use
  Company Number: US-ABBVIE-4239566

PATIENT
  Sex: Female

DRUGS (1)
  1. SKYRIZI [Suspect]
     Active Substance: RISANKIZUMAB-RZAA
     Indication: Crohn^s disease
     Route: 042
     Dates: start: 20221207

REACTIONS (5)
  - Back pain [Recovered/Resolved]
  - Gastrointestinal disorder [Recovered/Resolved]
  - Fatigue [Recovering/Resolving]
  - Poor quality sleep [Unknown]
  - Nausea [Unknown]
